FAERS Safety Report 6980424-9 (Version None)
Quarter: 2010Q3

REPORT INFORMATION
  Report Type: 
  Country: None (occurrence: None)
  Receive Date: 20100914
  Receipt Date: 20100409
  Transmission Date: 20110219
  Serious: No
  Sender: FDA-Public Use
  Company Number: US-ABBOTT-10P-163-0638941-00

PATIENT
  Sex: Male
  Weight: 29.51 kg

DRUGS (2)
  1. DEPAKOTE [Suspect]
     Indication: CONVULSION
     Dosage: 375MG IN AM, AND 500MG IN PM
     Route: 048
     Dates: start: 20080601
  2. DIASTAT [Concomitant]
     Indication: CONVULSION
     Dosage: PRN- DOSE UNKNOWN

REACTIONS (1)
  - BREATH ODOUR [None]
